FAERS Safety Report 22048120 (Version 2)
Quarter: 2023Q4

REPORT INFORMATION
  Report Type: Spontaneous
  Country: FR (occurrence: FR)
  Receive Date: 20230301
  Receipt Date: 20231028
  Transmission Date: 20240110
  Serious: Yes (Death, Hospitalization)
  Sender: FDA-Public Use
  Company Number: None

PATIENT
  Age: 49 Year
  Sex: Male
  Weight: 65.3 kg

DRUGS (2)
  1. CLARITHROMYCIN [Interacting]
     Active Substance: CLARITHROMYCIN
     Indication: Pulmonary sarcoidosis
     Dosage: DOSAGE UNKNOWN, DURATION : 9 DAYS
     Route: 065
     Dates: start: 20221214, end: 20221223
  2. PREDNISONE [Interacting]
     Active Substance: PREDNISONE
     Indication: Pulmonary sarcoidosis
     Dosage: 60 MILLIGRAM DAILY; 60MG/D, UNIT DOSE : 60 MG, FREQUENCY : OD, DURATION : 9 DAYS
     Dates: start: 20221214, end: 20221223

REACTIONS (3)
  - Completed suicide [Fatal]
  - Delusional disorder, persecutory type [Recovering/Resolving]
  - Drug interaction [Recovering/Resolving]

NARRATIVE: CASE EVENT DATE: 20221215
